FAERS Safety Report 22805712 (Version 2)
Quarter: 2024Q2

REPORT INFORMATION
  Report Type: Spontaneous
  Country: US (occurrence: US)
  Receive Date: 20230809
  Receipt Date: 20240415
  Transmission Date: 20240715
  Serious: No
  Sender: FDA-Public Use
  Company Number: US-MYLANLABS-2023M1073565

PATIENT
  Sex: Female
  Weight: 68.5 kg

DRUGS (1)
  1. LATANOPROST [Suspect]
     Active Substance: LATANOPROST
     Indication: Glaucoma
     Dosage: 1 GTT DROPS, BID (TAKEN ONE DROP EACH EYE 2X A DAY MORNING AND AT NIGHT)
     Route: 047
     Dates: start: 20230616

REACTIONS (1)
  - Eye irritation [Unknown]
